FAERS Safety Report 7372762-5 (Version None)
Quarter: 2011Q1

REPORT INFORMATION
  Report Type: 
  Country: None (occurrence: None)
  Receive Date: 20110324
  Receipt Date: 20110315
  Transmission Date: 20110831
  Serious: Yes (Hospitalization)
  Sender: FDA-Public Use
  Company Number: IE-MEDIMMUNE-MEDI-0012004

PATIENT
  Sex: Male
  Weight: 5.82 kg

DRUGS (4)
  1. SYNAGIS [Suspect]
  2. SYNAGIS [Suspect]
     Route: 030
     Dates: start: 20101015, end: 20101015
  3. KAPSOVIT [Concomitant]
  4. FERROUS SULFATE TAB [Concomitant]

REACTIONS (2)
  - LOWER RESPIRATORY TRACT INFECTION [None]
  - BRONCHIOLITIS [None]
